FAERS Safety Report 5447838-X (Version None)
Quarter: 2007Q3

REPORT INFORMATION
  Report Type: 
  Country: None (occurrence: None)
  Receive Date: 20070910
  Receipt Date: 20070830
  Transmission Date: 20080115
  Serious: Yes (Other)
  Sender: FDA-Public Use
  Company Number: GB-ELI_LILLY_AND_COMPANY-GB200708006896

PATIENT
  Age: 83 Year
  Weight: 58 kg

DRUGS (8)
  1. YENTREVE [Suspect]
     Indication: HYPERTONIC BLADDER
     Dosage: 40 MG, UNKNOWN
     Route: 048
     Dates: start: 20070726, end: 20070806
  2. CALCICHEW [Concomitant]
     Indication: OSTEOPENIA
     Dosage: UNK, UNKNOWN
     Route: 048
     Dates: start: 20041022
  3. METFORMIN HCL [Concomitant]
     Indication: DIABETES MELLITUS
     Dosage: 500 MG, UNKNOWN
     Route: 065
     Dates: start: 20060721
  4. OMEPRAZOLE [Concomitant]
     Indication: GASTROOESOPHAGEAL REFLUX DISEASE
     Dosage: 20 MG, UNKNOWN
     Route: 048
     Dates: start: 20000406
  5. PARACETAMOL [Concomitant]
     Indication: PAIN
     Dosage: UNK, AS NEEDED
     Route: 065
  6. SIMVASTATIN [Concomitant]
     Indication: HYPERCHOLESTEROLAEMIA
     Dosage: 40 MG, UNKNOWN
     Route: 048
     Dates: start: 20041130
  7. TAMOXIFEN CITRATE [Concomitant]
     Indication: BREAST CANCER
     Dosage: 20 MG, UNKNOWN
     Route: 065
     Dates: start: 20040101
  8. TRAMADOL HCL [Concomitant]
     Indication: OSTEOARTHRITIS
     Dosage: 100 MG, UNKNOWN
     Route: 048
     Dates: start: 20020821

REACTIONS (4)
  - DIZZINESS [None]
  - FALL [None]
  - FEELING DRUNK [None]
  - GAIT DISTURBANCE [None]
